FAERS Safety Report 24650889 (Version 3)
Quarter: 2024Q4

REPORT INFORMATION
  Report Type: Spontaneous
  Country: US (occurrence: US)
  Receive Date: 20241122
  Receipt Date: 20241220
  Transmission Date: 20250115
  Serious: Yes (Hospitalization, Other)
  Sender: AVADEL CNS PHARMACEUTICALS, LLC
  Company Number: US-AVADEL CNS PHARMACEUTICALS, LLC-2024AVA02181

PATIENT
  Sex: Female

DRUGS (2)
  1. LUMRYZ [Suspect]
     Active Substance: SODIUM OXYBATE
     Indication: Narcolepsy
     Dosage: 7.5 G, ONCE NIGHTLY
     Dates: start: 20241010, end: 202410
  2. LUMRYZ [Suspect]
     Active Substance: SODIUM OXYBATE
     Indication: Narcolepsy
     Dosage: 9 G, ONCE NIGHTLY
     Dates: start: 202410, end: 20241030

REACTIONS (7)
  - Derealisation [Unknown]
  - Delusion [Unknown]
  - Thinking abnormal [Unknown]
  - Mental disorder [Recovering/Resolving]
  - Pneumonia [Unknown]
  - Suicidal ideation [Recovering/Resolving]
  - Hallucination, visual [Unknown]

NARRATIVE: CASE EVENT DATE: 20240101
